FAERS Safety Report 6989586-0 (Version None)
Quarter: 2010Q3

REPORT INFORMATION
  Report Type: 
  Country: None (occurrence: None)
  Receive Date: 20100916
  Receipt Date: 20100119
  Transmission Date: 20110219
  Serious: Yes (Other)
  Sender: FDA-Public Use
  Company Number: US-PFIZER INC-2009312035

PATIENT
  Age: 41 Year
  Sex: Male
  Weight: 119.73 kg

DRUGS (2)
  1. LYRICA [Suspect]
     Indication: PROCEDURAL PAIN
     Dosage: 75 MG, 3X/DAY
     Route: 048
     Dates: start: 20091210, end: 20091217
  2. METHADONE [Suspect]
     Dosage: 10 MG, 2X/DAY
     Dates: end: 20091222

REACTIONS (2)
  - DYSPHEMIA [None]
  - SPEECH DISORDER [None]
